FAERS Safety Report 10998193 (Version 1)
Quarter: 2015Q2

REPORT INFORMATION
  Report Type: Spontaneous
  Country: US (occurrence: None)
  Receive Date: 20150407
  Receipt Date: 20150407
  Transmission Date: 20150821
  Serious: Yes (Disabling)
  Sender: FDA-Public Use
  Company Number: None

PATIENT
  Age: 18 Year
  Sex: Male
  Weight: 122.47 kg

DRUGS (5)
  1. VESICARE [Concomitant]
     Active Substance: SOLIFENACIN SUCCINATE
  2. ABSORICA [Suspect]
     Active Substance: ISOTRETINOIN
     Indication: ACNE
     Route: 048
     Dates: start: 20141023, end: 20141123
  3. FLUOCINONIDE TOPICAL SOLUTION USP 0.05% [Concomitant]
     Active Substance: FLUOCINONIDE
  4. MYBETRIQ TABS [Concomitant]
  5. CLINDAMYCIN PHOS LOTN [Concomitant]

REACTIONS (5)
  - Pollakiuria [None]
  - Mood swings [None]
  - Poor quality sleep [None]
  - Enuresis [None]
  - Drug effect decreased [None]

NARRATIVE: CASE EVENT DATE: 20141023
